FAERS Safety Report 8118793-9 (Version None)
Quarter: 2012Q1

REPORT INFORMATION
  Report Type: 
  Country: None (occurrence: None)
  Receive Date: 20120202
  Receipt Date: 20120119
  Transmission Date: 20120608
  Serious: Yes (Hospitalization)
  Sender: FDA-Public Use
  Company Number: 2012AP000171

PATIENT
  Age: 80 Year
  Sex: Female

DRUGS (13)
  1. WARFARIN SODIUM [Concomitant]
  2. INSULIN LISPRO (INSULIN LISPRO) [Concomitant]
  3. INSULIN GLARGINE (INSULIN GLARGINE) [Concomitant]
  4. CLARITHROMYCIN [Suspect]
     Indication: PRODUCT USED FOR UNKNOWN INDICATION
     Dosage: 1 G, QD, PO
     Route: 048
     Dates: start: 20111129, end: 20111212
  5. DULOXETINE HYDROCHLORIDE [Concomitant]
  6. PANTOPRAZOLE [Concomitant]
  7. RUPATADINE FUMARATE (RUPATADINE FUMARATE) [Concomitant]
  8. ZOLPIDEM [Concomitant]
  9. ALLOPURINOL [Concomitant]
  10. RAMIPRIL [Concomitant]
  11. AMLODIPINE [Concomitant]
  12. FUROSEMIDE [Concomitant]
  13. PARACETAMOL W/CODEINE PHOSPHATE (PARACETAMOL W/CODEINE PHOSPHATE) [Concomitant]

REACTIONS (4)
  - SKIN EXFOLIATION [None]
  - PRURITUS [None]
  - DEHYDRATION [None]
  - RENAL FAILURE CHRONIC [None]
